FAERS Safety Report 6311179-9 (Version None)
Quarter: 2009Q3

REPORT INFORMATION
  Report Type: 
  Country: None (occurrence: None)
  Receive Date: 20090817
  Receipt Date: 20090811
  Transmission Date: 20100115
  Serious: Yes (Other)
  Sender: FDA-Public Use
  Company Number: US-ROCHE-650056

PATIENT
  Age: 50 Year
  Sex: Male

DRUGS (15)
  1. KLONOPIN [Suspect]
     Indication: INITIAL INSOMNIA
     Route: 065
  2. REQUIP [Interacting]
     Indication: DRUG USE FOR UNKNOWN INDICATION
     Dosage: DRUG: REQUIP XL, STARTED AT 2 MG AND THEN GRADUALLY INCREASED TO 8 MG
     Route: 065
  3. REQUIP [Interacting]
     Route: 065
     Dates: start: 20090412, end: 20090512
  4. REQUIP [Interacting]
     Route: 065
     Dates: start: 20090513, end: 20090707
  5. REQUIP [Interacting]
     Route: 065
     Dates: start: 20090608, end: 20090709
  6. REQUIP [Interacting]
     Route: 065
     Dates: start: 20090710, end: 20090721
  7. REQUIP [Interacting]
     Dosage: DOSE INCREASED
     Route: 065
     Dates: start: 20090724
  8. SINEMET [Interacting]
     Indication: DRUG USE FOR UNKNOWN INDICATION
     Route: 065
  9. RASAGILINE [Interacting]
     Indication: MOTOR DYSFUNCTION
     Dosage: DRUG: RASAGILINE MESILATE
     Route: 065
  10. DULOXETINE HYDROCHLORIDE [Interacting]
     Indication: DEPRESSION
     Route: 065
  11. AMANTADINE HCL [Interacting]
     Indication: DYSKINESIA
     Route: 065
  12. BENZHEXOL [Interacting]
     Indication: MUSCLE RIGIDITY
     Route: 065
  13. CO-CARELDOPA [Interacting]
     Indication: GAIT DISTURBANCE
     Route: 065
  14. LINSEED [Interacting]
     Indication: DRUG USE FOR UNKNOWN INDICATION
     Dosage: 1 TABLESPOON PER DAY
     Route: 065
  15. UBIDECARENONE [Interacting]
     Indication: DRUG USE FOR UNKNOWN INDICATION
     Route: 065

REACTIONS (15)
  - BALANCE DISORDER [None]
  - CONTUSION [None]
  - DISEASE PROGRESSION [None]
  - DRUG EFFECT DELAYED [None]
  - DRUG INTERACTION [None]
  - DYSKINESIA [None]
  - FALL [None]
  - FATIGUE [None]
  - HYPOAESTHESIA [None]
  - INSOMNIA [None]
  - JOINT SWELLING [None]
  - MUSCULAR WEAKNESS [None]
  - MUSCULOSKELETAL DISORDER [None]
  - SOMNOLENCE [None]
  - TREMOR [None]
